FAERS Safety Report 7206808-1 (Version None)
Quarter: 2010Q4

REPORT INFORMATION
  Report Type: 
  Country: None (occurrence: None)
  Receive Date: 20101217
  Receipt Date: 20101214
  Transmission Date: 20110411
  Serious: Yes (Other)
  Sender: FDA-Public Use
  Company Number: A0874577A

PATIENT
  Age: 12 Year
  Sex: Male

DRUGS (1)
  1. SODIUM FLUORIDE + ISOPENTANE + SODIUM TRIPOLYPHOSPHATE (FORM (NAFLUORI [Suspect]
     Indication: DENTAL CLEANING
     Dosage: DENTAL
     Route: 004

REACTIONS (2)
  - APHASIA [None]
  - CHOKING [None]
